FAERS Safety Report 5921019-5 (Version None)
Quarter: 2008Q4

REPORT INFORMATION
  Report Type: 
  Country: None (occurrence: None)
  Receive Date: 20081016
  Receipt Date: 20060817
  Transmission Date: 20090506
  Serious: Yes (Life-Threatening, Hospitalization, Other)
  Sender: FDA-Public Use
  Company Number: US-PFIZER INC-2005003387

PATIENT
  Sex: Male
  Weight: 71.2 kg

DRUGS (3)
  1. NEURONTIN [Suspect]
     Indication: RESTLESS LEGS SYNDROME
     Dates: start: 19990311
  2. NEURONTIN [Suspect]
     Indication: PAIN IN EXTREMITY
  3. NEURONTIN [Suspect]
     Indication: RADICULOPATHY

REACTIONS (25)
  - AMNESIA [None]
  - BRAIN INJURY [None]
  - CEREBROVASCULAR ACCIDENT [None]
  - CERVICAL VERTEBRAL FRACTURE [None]
  - CONJUNCTIVITIS [None]
  - CONVULSION [None]
  - DEFORMITY [None]
  - DRUG INEFFECTIVE [None]
  - DYSPHAGIA [None]
  - FACIAL BONES FRACTURE [None]
  - FACIAL PALSY [None]
  - GUN SHOT WOUND [None]
  - HEAD DEFORMITY [None]
  - NEUROPATHY PERIPHERAL [None]
  - PNEUMONIA HAEMOPHILUS [None]
  - STATUS EPILEPTICUS [None]
  - STRABISMUS [None]
  - SUBARACHNOID HAEMORRHAGE [None]
  - SUBDURAL HAEMATOMA [None]
  - SUICIDE ATTEMPT [None]
  - SYNCOPE [None]
  - TRACHEOSTOMY [None]
  - ULCERATIVE KERATITIS [None]
  - VENA CAVA FILTER INSERTION [None]
  - WEANING FAILURE [None]
